FAERS Safety Report 8540407-4 (Version None)
Quarter: 2012Q3

REPORT INFORMATION
  Report Type: 
  Country: None (occurrence: None)
  Receive Date: 20120726
  Receipt Date: 20111018
  Transmission Date: 20120928
  Serious: No
  Sender: FDA-Public Use
  Company Number: US-ASTRAZENECA-2011SE24579

PATIENT
  Age: 18218 Day
  Sex: Female

DRUGS (5)
  1. SEROQUEL [Suspect]
     Indication: POST-TRAUMATIC STRESS DISORDER
     Route: 048
  2. CYMBALTA [Concomitant]
  3. CARBAMAZEPINE [Concomitant]
  4. SEROQUEL [Suspect]
     Indication: BIPOLAR II DISORDER
     Route: 048
  5. SEROQUEL [Suspect]
     Indication: BIPOLAR DISORDER
     Route: 048

REACTIONS (6)
  - OFF LABEL USE [None]
  - ABDOMINAL DISCOMFORT [None]
  - DIARRHOEA [None]
  - VOMITING [None]
  - GASTROENTERITIS VIRAL [None]
  - INCORRECT DOSE ADMINISTERED [None]
